FAERS Safety Report 24236319 (Version 2)
Quarter: 2024Q3

REPORT INFORMATION
  Report Type: Report from Study
  Country: CA (occurrence: CA)
  Receive Date: 20240822
  Receipt Date: 20240919
  Transmission Date: 20241017
  Serious: Yes (Other)
  Sender: NOVARTIS
  Company Number: CA-002147023-NVSC2023CA239149

PATIENT
  Age: 2 Year
  Sex: Female

DRUGS (7)
  1. ELTROMBOPAG OLAMINE [Suspect]
     Active Substance: ELTROMBOPAG OLAMINE
     Indication: Immune thrombocytopenia
     Dosage: 25 MG, QD
     Route: 048
     Dates: start: 20231003
  2. ELTROMBOPAG OLAMINE [Suspect]
     Active Substance: ELTROMBOPAG OLAMINE
     Dosage: 1 DOSAGE FORM (25/50MG)
     Route: 065
  3. ELTROMBOPAG OLAMINE [Suspect]
     Active Substance: ELTROMBOPAG OLAMINE
     Dosage: 50 MG, QD
     Route: 048
     Dates: start: 20231103
  4. ELTROMBOPAG OLAMINE [Suspect]
     Active Substance: ELTROMBOPAG OLAMINE
     Dosage: 75 MG, QD
     Route: 048
  5. ELTROMBOPAG OLAMINE [Suspect]
     Active Substance: ELTROMBOPAG OLAMINE
     Dosage: 25 MG, QD
     Route: 065
  6. ELTROMBOPAG OLAMINE [Suspect]
     Active Substance: ELTROMBOPAG OLAMINE
     Dosage: 25MG ALTERNATING WITH 50MG, QD
     Route: 048
  7. MYCOPHENOLATE MOFETIL [Concomitant]
     Active Substance: MYCOPHENOLATE MOFETIL
     Indication: Product used for unknown indication
     Dosage: UNK
     Route: 065

REACTIONS (22)
  - Jaundice [Recovered/Resolved]
  - Liver function test increased [Recovered/Resolved]
  - Blood bilirubin increased [Recovered/Resolved]
  - Hypertransaminasaemia [Unknown]
  - Ocular icterus [Unknown]
  - Scleral discolouration [Not Recovered/Not Resolved]
  - Asthenopia [Unknown]
  - Gastroenteritis viral [Unknown]
  - Eating disorder [Unknown]
  - Dysgeusia [Unknown]
  - Platelet count decreased [Unknown]
  - COVID-19 [Unknown]
  - Urinary tract infection [Unknown]
  - Conjunctivitis [Recovered/Resolved]
  - Ear infection [Unknown]
  - Hepatic enzyme increased [Unknown]
  - Nasopharyngitis [Unknown]
  - Cough [Unknown]
  - Pyrexia [Unknown]
  - Drug ineffective [Unknown]
  - Liver disorder [Unknown]
  - Off label use [Unknown]

NARRATIVE: CASE EVENT DATE: 20240501
